FAERS Safety Report 14249760 (Version 2)
Quarter: 2018Q1

REPORT INFORMATION
  Report Type: Spontaneous
  Country: US (occurrence: US)
  Receive Date: 20171205
  Receipt Date: 20180205
  Transmission Date: 20180508
  Serious: Yes (Other)
  Sender: FDA-Public Use
  Company Number: US-SUN PHARMACEUTICAL INDUSTRIES LTD-2017US-156085

PATIENT
  Sex: Female

DRUGS (1)
  1. OLANZAPINE. [Suspect]
     Active Substance: OLANZAPINE
     Indication: PSYCHOTIC DISORDER
     Route: 065

REACTIONS (6)
  - Weight increased [Unknown]
  - Dyskinesia [Unknown]
  - Drug level above therapeutic [Unknown]
  - Lipids abnormal [Unknown]
  - Drug ineffective [Unknown]
  - Treatment noncompliance [Unknown]
